FAERS Safety Report 5302887-7 (Version None)
Quarter: 2007Q2

REPORT INFORMATION
  Report Type: 
  Country: None (occurrence: None)
  Receive Date: 20070419
  Receipt Date: 20070419
  Transmission Date: 20071010
  Serious: No
  Sender: FDA-Public Use
  Company Number: None

PATIENT
  Age: 29 Year
  Sex: Female
  Weight: 50.8029 kg

DRUGS (1)
  1. KENALOG [Suspect]
     Indication: RASH
     Dosage: 60 MG ONE SHOT
     Dates: start: 20051110, end: 20051110

REACTIONS (6)
  - CHEST PAIN [None]
  - FUNGAL INFECTION [None]
  - INJECTION SITE DISCOLOURATION [None]
  - INJECTION SITE REACTION [None]
  - MENORRHAGIA [None]
  - SELF ESTEEM DECREASED [None]
